FAERS Safety Report 13619709 (Version 1)
Quarter: 2017Q2

REPORT INFORMATION
  Report Type: Spontaneous
  Country: US (occurrence: US)
  Receive Date: 20170606
  Receipt Date: 20170606
  Transmission Date: 20170830
  Serious: Yes (Other)
  Sender: FDA-Public Use
  Company Number: None

PATIENT
  Sex: Male

DRUGS (1)
  1. TALTZ [Suspect]
     Active Substance: IXEKIZUMAB
     Indication: PSORIASIS
     Dosage: 80MG Q2WKS X5 WKS , THEN MONTHLY SQ
     Route: 058
     Dates: start: 20170403

REACTIONS (2)
  - Pneumonia [None]
  - Viral upper respiratory tract infection [None]
